FAERS Safety Report 24974840 (Version 1)
Quarter: 2025Q1

REPORT INFORMATION
  Report Type: Spontaneous
  Country: US (occurrence: US)
  Receive Date: 20250217
  Receipt Date: 20250217
  Transmission Date: 20250408
  Serious: No
  Sender: ROCHE
  Company Number: US-ROCHE-10000203345

PATIENT
  Age: 46 Year
  Sex: Female
  Weight: 105 kg

DRUGS (1)
  1. XOLAIR [Suspect]
     Active Substance: OMALIZUMAB
     Indication: Asthma
     Dosage: ONGOING
     Route: 058

REACTIONS (2)
  - Product prescribing error [Unknown]
  - No adverse event [Unknown]
